FAERS Safety Report 14341266 (Version 1)
Quarter: 2018Q1

REPORT INFORMATION
  Report Type: Spontaneous
  Country: GB (occurrence: GB)
  Receive Date: 20180102
  Receipt Date: 20180102
  Transmission Date: 20180509
  Serious: Yes (Other)
  Sender: FDA-Public Use
  Company Number: GB-ACCORD-062534

PATIENT
  Age: 46 Year
  Sex: Female

DRUGS (7)
  1. OLANZAPINE. [Concomitant]
     Active Substance: OLANZAPINE
     Indication: SUBSTANCE-INDUCED PSYCHOTIC DISORDER
     Dosage: INCREASED GRADUALLY TO 15 MG/DAY
  2. DIAZEPAM. [Suspect]
     Active Substance: DIAZEPAM
     Indication: SUBSTANCE-INDUCED PSYCHOTIC DISORDER
  3. SERTRALINE [Suspect]
     Active Substance: SERTRALINE HYDROCHLORIDE
     Indication: MAJOR DEPRESSION
     Dosage: UP TO 150 MG PER DAY
  4. PREDNISOLONE. [Suspect]
     Active Substance: PREDNISOLONE
     Indication: ENDOCRINE OPHTHALMOPATHY
     Dosage: PREDNISOLONE 500 MG PER DAY INTRAVENOUSLY
     Route: 048
  5. PREDNISOLONE. [Suspect]
     Active Substance: PREDNISOLONE
     Indication: ENDOCRINE OPHTHALMOPATHY
     Dosage: RECEIVED 3 DOSES PER DAY INTRAVENOUSLY
     Route: 042
  6. VENLAFAXINE/VENLAFAXINE HYDROCHLORIDE [Suspect]
     Active Substance: VENLAFAXINE HYDROCHLORIDE
     Indication: MAJOR DEPRESSION
     Dosage: UP TO 225 MG/DAY
  7. PREDNISOLONE. [Suspect]
     Active Substance: PREDNISOLONE
     Indication: ENDOCRINE OPHTHALMOPATHY
     Dosage: RECEIVED 3 DOSES OF PREDNISOLONE 500 MG PER DAY INTRAVENOUSLY

REACTIONS (5)
  - Substance-induced psychotic disorder [Recovered/Resolved]
  - Off label use [Unknown]
  - Psychomotor retardation [Recovered/Resolved]
  - Drug ineffective [Unknown]
  - Paraesthesia [None]
